FAERS Safety Report 13483951 (Version 2)
Quarter: 2017Q2

REPORT INFORMATION
  Report Type: Spontaneous
  Country: US (occurrence: US)
  Receive Date: 20170425
  Receipt Date: 20170425
  Transmission Date: 20170830
  Serious: No
  Sender: FDA-Public Use
  Company Number: US-JNJFOC-20170416369

PATIENT
  Sex: Female
  Weight: 93.9 kg

DRUGS (7)
  1. LAMOTRIGINE. [Concomitant]
     Active Substance: LAMOTRIGINE
     Indication: MOOD SWINGS
     Dosage: ONCE IN MORNING
     Route: 048
     Dates: start: 201610
  2. ELMIRON [Suspect]
     Active Substance: PENTOSAN POLYSULFATE SODIUM
     Indication: CYSTITIS INTERSTITIAL
     Route: 048
     Dates: start: 201702, end: 20170409
  3. LAMOTRIGINE. [Concomitant]
     Active Substance: LAMOTRIGINE
     Indication: DEPRESSION
     Dosage: ONCE IN MORNING
     Route: 048
     Dates: start: 201610
  4. BUPROPION. [Concomitant]
     Active Substance: BUPROPION
     Indication: DEPRESSION
     Dosage: ONCE IN MORNING
     Route: 048
     Dates: start: 201610
  5. LAMOTRIGINE. [Concomitant]
     Active Substance: LAMOTRIGINE
     Indication: ANXIETY
     Dosage: ONCE IN MORNING
     Route: 048
     Dates: start: 201610
  6. BUPROPION. [Concomitant]
     Active Substance: BUPROPION
     Indication: MOOD SWINGS
     Dosage: ONCE IN MORNING
     Route: 048
     Dates: start: 201610
  7. BUPROPION. [Concomitant]
     Active Substance: BUPROPION
     Indication: ANXIETY
     Dosage: ONCE IN MORNING
     Route: 048
     Dates: start: 201610

REACTIONS (1)
  - Fungal infection [Not Recovered/Not Resolved]
